FAERS Safety Report 21694166 (Version 2)
Quarter: 2022Q4

REPORT INFORMATION
  Report Type: Spontaneous
  Country: FR (occurrence: FR)
  Receive Date: 20221207
  Receipt Date: 20221224
  Transmission Date: 20230112
  Serious: Yes (Death)
  Sender: FDA-Public Use
  Company Number: None

PATIENT
  Age: 75 Year
  Sex: Male
  Weight: 95 kg

DRUGS (3)
  1. METHOTREXATE [Suspect]
     Active Substance: METHOTREXATE
     Indication: Rheumatoid arthritis
     Dosage: ?MG/WEEK, THERAPY START DATE : NASK
     Route: 065
     Dates: end: 20210313
  2. COMIRNATY [Suspect]
     Active Substance: TOZINAMERAN
     Indication: COVID-19 immunisation
     Dosage: D1, MODIFIED NUCLEOSIDE, DISPERSION TO BE DILUTED FOR INJECTION, UNIT DOSE : 1 DOSAGE FORMS, FREQUEN
     Route: 065
     Dates: start: 20210312, end: 20210312
  3. BISOPROLOL FUMARATE\HYDROCHLOROTHIAZIDE [Suspect]
     Active Substance: BISOPROLOL FUMARATE\HYDROCHLOROTHIAZIDE
     Indication: Hypertension
     Dosage: FORM STRENGTH : 2.5 MG/6.25 MG, UNIT DOSE : 1 DOSAGE FORMS, FREQUENCY TIME : 1 DAYS, THERAPY START D
     Route: 065
     Dates: end: 20210313

REACTIONS (3)
  - Atrial fibrillation [Fatal]
  - Pneumonia aspiration [Fatal]
  - Ischaemic stroke [Fatal]

NARRATIVE: CASE EVENT DATE: 20210314
